FAERS Safety Report 5329619-0 (Version None)
Quarter: 2007Q2

REPORT INFORMATION
  Report Type: 
  Country: None (occurrence: None)
  Receive Date: 20070227
  Receipt Date: 20060130
  Transmission Date: 20071010
  Serious: Yes (Other)
  Sender: FDA-Public Use
  Company Number: 410789

PATIENT
  Sex: 0

DRUGS (1)
  1. ACCUTANE (ISOTRETINOIN) [Suspect]
     Indication: ACNE CYSTIC
     Dates: start: 20010615, end: 20010615

REACTIONS (1)
  - ABORTION INDUCED [None]
